FAERS Safety Report 6021541-X (Version None)
Quarter: 2008Q4

REPORT INFORMATION
  Report Type: 
  Country: None (occurrence: None)
  Receive Date: 20081229
  Receipt Date: 20081218
  Transmission Date: 20090506
  Serious: Yes (Other)
  Sender: FDA-Public Use
  Company Number: PHHY2008GB32591

PATIENT
  Sex: Female

DRUGS (3)
  1. ALISKIREN [Suspect]
  2. DOXAZOSIN MESYLATE [Concomitant]
  3. SPIRONOLACTONE [Concomitant]

REACTIONS (2)
  - DEHYDRATION [None]
  - LOSS OF CONSCIOUSNESS [None]
